FAERS Safety Report 7579104-0 (Version None)
Quarter: 2011Q2

REPORT INFORMATION
  Report Type: 
  Country: None (occurrence: None)
  Receive Date: 20110628
  Receipt Date: 20110622
  Transmission Date: 20111010
  Serious: Yes (Other)
  Sender: FDA-Public Use
  Company Number: US-PFIZER INC-2011138475

PATIENT
  Sex: Female
  Weight: 63.492 kg

DRUGS (2)
  1. PRISTIQ [Suspect]
     Indication: DEPRESSION
     Dosage: 50 MG, DAILY
     Route: 048
     Dates: start: 20110301
  2. PRISTIQ [Suspect]
     Indication: ANXIETY

REACTIONS (3)
  - HEART RATE INCREASED [None]
  - DIZZINESS [None]
  - SUPRAVENTRICULAR TACHYCARDIA [None]
